FAERS Safety Report 7345349-8 (Version None)
Quarter: 2011Q1

REPORT INFORMATION
  Report Type: 
  Country: None (occurrence: None)
  Receive Date: 20110310
  Receipt Date: 20110303
  Transmission Date: 20110831
  Serious: Yes (Other)
  Sender: FDA-Public Use
  Company Number: US-PFIZER INC-2011010208

PATIENT
  Sex: Female
  Weight: 83.447 kg

DRUGS (5)
  1. EFFEXOR XR [Suspect]
     Indication: DEPRESSION
     Dosage: 37.5 MG, 1X/DAY
     Route: 048
     Dates: start: 20100101
  2. HYDROCODONE [Concomitant]
     Indication: INTERVERTEBRAL DISC DEGENERATION
     Dosage: ^500^ MG, 3X/DAY
  3. TRAZODONE [Concomitant]
     Indication: SLEEP DISORDER
     Dosage: 50 MG, UNK
  4. EFFEXOR XR [Suspect]
     Dosage: 75 MG, 1X/DAY
     Route: 048
  5. EFFEXOR XR [Suspect]
     Dosage: UNKNOWN DOSE, EVERY OTHER DAY
     Route: 048

REACTIONS (6)
  - DIZZINESS [None]
  - MALAISE [None]
  - TINNITUS [None]
  - DRUG WITHDRAWAL SYNDROME [None]
  - BALANCE DISORDER [None]
  - NAUSEA [None]
